FAERS Safety Report 23567249 (Version 1)
Quarter: 2024Q1

REPORT INFORMATION
  Report Type: Report from Study
  Country: IT (occurrence: IT)
  Receive Date: 20240226
  Receipt Date: 20240226
  Transmission Date: 20240410
  Serious: Yes (Other)
  Sender: FDA-Public Use
  Company Number: None

PATIENT
  Age: 23 Year
  Sex: Male

DRUGS (2)
  1. HALOPERIDOL [Suspect]
     Active Substance: HALOPERIDOL
     Indication: Bipolar I disorder
     Dosage: DROPS 10 MG/ ML. TAKEN 20 DROPS (10 MG) 04/24/23
     Route: 048
     Dates: start: 20230424, end: 20230425
  2. HALOPERIDOL [Suspect]
     Active Substance: HALOPERIDOL
     Dosage: 4 DROPS (2MG) 04/25/23
     Route: 048
     Dates: start: 20230425, end: 20230425

REACTIONS (2)
  - Dysarthria [Recovered/Resolved]
  - Confusional state [Recovered/Resolved]

NARRATIVE: CASE EVENT DATE: 20230425
